FAERS Safety Report 4582613-X (Version None)
Quarter: 2005Q1

REPORT INFORMATION
  Report Type: 
  Country: None (occurrence: None)
  Receive Date: 20050211
  Receipt Date: 20050211
  Transmission Date: 20050727
  Serious: Yes (Other)
  Sender: FDA-Public Use
  Company Number: None

PATIENT
  Age: 29 Year
  Sex: Female
  Weight: 72.5755 kg

DRUGS (2)
  1. CITALOPRAM [Suspect]
     Indication: ANXIETY
     Dosage: 20MG  DAILY ORAL
     Route: 048
     Dates: start: 20050202, end: 20050206
  2. CITALOPRAM [Suspect]
     Indication: DEPRESSION
     Dosage: 20MG  DAILY ORAL
     Route: 048
     Dates: start: 20050202, end: 20050206

REACTIONS (17)
  - ANOREXIA [None]
  - CHILLS [None]
  - DEHYDRATION [None]
  - DIARRHOEA [None]
  - HEADACHE [None]
  - HEART RATE INCREASED [None]
  - INSOMNIA [None]
  - NAUSEA [None]
  - NIGHTMARE [None]
  - PARAESTHESIA [None]
  - PERIPHERAL COLDNESS [None]
  - POLLAKIURIA [None]
  - RESTLESSNESS [None]
  - SOMNOLENCE [None]
  - TREMOR [None]
  - VOMITING [None]
  - YAWNING [None]
